FAERS Safety Report 7985164-5 (Version None)
Quarter: 2011Q4

REPORT INFORMATION
  Report Type: 
  Country: None (occurrence: None)
  Receive Date: 20111216
  Receipt Date: 20111206
  Transmission Date: 20120403
  Serious: Yes (Death)
  Sender: FDA-Public Use
  Company Number: US-CELGENEUS-163-20785-11102886

PATIENT
  Sex: Male

DRUGS (4)
  1. FISH OIL [Concomitant]
     Route: 065
  2. INSULIN [Concomitant]
     Route: 065
  3. THALOMID [Suspect]
     Indication: MULTIPLE MYELOMA
     Dosage: 50 MILLIGRAM
     Route: 048
     Dates: start: 20070101
  4. SIMVASTATIN [Concomitant]
     Route: 065

REACTIONS (1)
  - NEUROENDOCRINE CARCINOMA OF THE SKIN [None]
